FAERS Safety Report 5824309-X (Version None)
Quarter: 2008Q3

REPORT INFORMATION
  Report Type: 
  Country: None (occurrence: None)
  Receive Date: 20080728
  Receipt Date: 20080716
  Transmission Date: 20090109
  Serious: Yes (Death)
  Sender: FDA-Public Use
  Company Number: FR-AVENTIS-200812697FR

PATIENT
  Age: 52 Year
  Sex: Male

DRUGS (7)
  1. TAXOTERE [Suspect]
     Route: 042
     Dates: start: 20080218, end: 20080218
  2. SOLUPRED                           /00016201/ [Suspect]
     Route: 048
  3. BI-PROFENID [Suspect]
     Route: 048
  4. EPREX [Suspect]
  5. TARDYFERON                         /00023503/ [Suspect]
     Route: 048
  6. FARLUTAL [Suspect]
     Route: 048
  7. FENTANYL-100 [Suspect]
     Indication: CANCER PAIN
     Route: 062

REACTIONS (3)
  - ACUTE RESPIRATORY FAILURE [None]
  - DYSPNOEA [None]
  - INTERSTITIAL LUNG DISEASE [None]
